FAERS Safety Report 10914856 (Version 3)
Quarter: 2015Q2

REPORT INFORMATION
  Report Type: Spontaneous
  Country: US (occurrence: US)
  Receive Date: 20150314
  Receipt Date: 20150624
  Transmission Date: 20150821
  Serious: Yes (Hospitalization)
  Sender: FDA-Public Use
  Company Number: US-JNJFOC-20150301525

PATIENT
  Sex: Female
  Weight: 50.8 kg

DRUGS (2)
  1. ZYRTEC [Suspect]
     Active Substance: CETIRIZINE HYDROCHLORIDE
     Route: 048
  2. ZYRTEC [Suspect]
     Active Substance: CETIRIZINE HYDROCHLORIDE
     Indication: DRUG HYPERSENSITIVITY
     Dosage: 10MG TABLET, PRN, DAILY IN OCT-2014
     Route: 048
     Dates: start: 20140601, end: 20141214

REACTIONS (7)
  - Immune thrombocytopenic purpura [Recovered/Resolved]
  - Product use issue [Unknown]
  - Headache [Unknown]
  - Microcytic anaemia [Recovered/Resolved]
  - Dizziness [Unknown]
  - Lacrimation increased [Unknown]
  - Eye pruritus [Unknown]
